FAERS Safety Report 9137433 (Version 1)
Quarter: 2013Q1

REPORT INFORMATION
  Report Type: Spontaneous
  Country: US (occurrence: US)
  Receive Date: 20130304
  Receipt Date: 20130304
  Transmission Date: 20140127
  Serious: No
  Sender: FDA-Public Use
  Company Number: US-BAYER-2013-025659

PATIENT
  Age: 64 Year
  Sex: Female
  Weight: 61 kg

DRUGS (4)
  1. ALEVE CAPLET/TABLET,MIDOL EXTENDED RELIEF CAPLET [Suspect]
     Route: 048
  2. EVISTA [RALOXIFENE HYDROCHLORIDE] [Concomitant]
  3. TYLENOL [Concomitant]
  4. ADVIL [Concomitant]

REACTIONS (1)
  - Overdose [None]
